FAERS Safety Report 25429883 (Version 1)
Quarter: 2025Q2

REPORT INFORMATION
  Report Type: Spontaneous
  Country: US (occurrence: None)
  Receive Date: 20250612
  Receipt Date: 20250612
  Transmission Date: 20250716
  Serious: Yes (Hospitalization)
  Sender: FDA-CTU
  Company Number: None

PATIENT
  Age: 79 Year
  Sex: Female

DRUGS (2)
  1. ORENCIA [Suspect]
     Active Substance: ABATACEPT
     Indication: Rheumatoid arthritis
     Dosage: 125MG WEEKLY ?
  2. IBANDRONATE SODIUM [Suspect]
     Active Substance: IBANDRONATE SODIUM

REACTIONS (4)
  - Pneumonia [None]
  - Sepsis [None]
  - Osteoarthritis [None]
  - Diarrhoea [None]
